FAERS Safety Report 17336891 (Version 6)
Quarter: 2020Q2

REPORT INFORMATION
  Report Type: Spontaneous
  Country: US (occurrence: US)
  Receive Date: 20200128
  Receipt Date: 20200409
  Transmission Date: 20200713
  Serious: No
  Sender: FDA-Public Use
  Company Number: US-PFIZER INC-2020034529

PATIENT
  Age: 85 Year
  Sex: Female
  Weight: 102 kg

DRUGS (8)
  1. CELEBREX [Suspect]
     Active Substance: CELECOXIB
     Indication: OSTEOARTHRITIS
  2. ALLOPURINOL. [Concomitant]
     Active Substance: ALLOPURINOL
     Indication: GOUTY ARTHRITIS
     Dosage: 100 MG, TWICE DAILY
     Dates: start: 2003
  3. WARFARIN [Concomitant]
     Active Substance: WARFARIN
     Dosage: 1.5 DF, AS NEEDED
     Dates: start: 2003
  4. CELEBREX [Suspect]
     Active Substance: CELECOXIB
     Indication: ARTHRITIS
     Dosage: 100 MG, TWICE DAILY (ONCE IN THE MORNING, ONCE IN THE LATE AFTERNOON OR EVENING)
  5. TYLENOL [Concomitant]
     Active Substance: ACETAMINOPHEN
     Indication: PAIN
     Dosage: 500 MG, DAILY
  6. CELEBREX [Suspect]
     Active Substance: CELECOXIB
     Indication: SPINAL OSTEOARTHRITIS
  7. CELEBREX [Suspect]
     Active Substance: CELECOXIB
     Indication: SCOLIOSIS
  8. METOPROLOL. [Concomitant]
     Active Substance: METOPROLOL
     Indication: ATRIAL FIBRILLATION
     Dosage: 25 MG, TWICE DAILY

REACTIONS (2)
  - Hypoacusis [Not Recovered/Not Resolved]
  - Body height decreased [Not Recovered/Not Resolved]
